FAERS Safety Report 6689813-3 (Version None)
Quarter: 2010Q2

REPORT INFORMATION
  Report Type: 
  Country: None (occurrence: None)
  Receive Date: 20100421
  Receipt Date: 20100412
  Transmission Date: 20101027
  Serious: Yes (Other)
  Sender: FDA-Public Use
  Company Number: US-ASTRAZENECA-2009UW18842

PATIENT
  Age: 55 Year
  Sex: Male

DRUGS (8)
  1. SEROQUEL [Suspect]
     Dosage: 25 MG TO 300 MG
     Route: 048
     Dates: start: 20040422
  2. LISINOPRIL AND HYDROCHLOROTHIAZIDE [Concomitant]
     Dosage: 20/25 MG 1 TABLET DAILY
     Dates: start: 20040213
  3. ALLEGRA [Concomitant]
     Dates: start: 20040227
  4. WELLBUTRIN XL [Concomitant]
     Dates: start: 20040422
  5. ASPIR LOW [Concomitant]
     Dates: start: 20050121
  6. BENZTROPINE MES [Concomitant]
     Route: 048
     Dates: start: 20051028
  7. ATENOLOL [Concomitant]
     Route: 048
     Dates: start: 20051031
  8. ABILIFY [Concomitant]
     Dates: start: 20060201

REACTIONS (3)
  - DIABETES MELLITUS [None]
  - ERECTILE DYSFUNCTION [None]
  - NEUROPATHY PERIPHERAL [None]
